FAERS Safety Report 18771710 (Version 1)
Quarter: 2021Q1

REPORT INFORMATION
  Report Type: Spontaneous
  Country: US (occurrence: US)
  Receive Date: 20210121
  Receipt Date: 20210121
  Transmission Date: 20210419
  Serious: Yes (Hospitalization, Other)
  Sender: FDA-Public Use
  Company Number: US-009507513-2101USA007942

PATIENT
  Sex: Female

DRUGS (2)
  1. HYDROCORTISONE. [Concomitant]
     Active Substance: HYDROCORTISONE
     Dosage: 1.5 TABLETS IN THE MORNING AN 1 TABLET AT NIGHT
  2. KEYTRUDA [Suspect]
     Active Substance: PEMBROLIZUMAB
     Indication: HEAD AND NECK CANCER
     Dosage: EVERY 21 DAYS
     Route: 042
     Dates: start: 20200611, end: 202008

REACTIONS (8)
  - Implantable defibrillator insertion [Unknown]
  - Urinary tract infection [Recovering/Resolving]
  - Adrenal insufficiency [Recovering/Resolving]
  - Rash vesicular [Recovering/Resolving]
  - Ill-defined disorder [Recovering/Resolving]
  - Weight increased [Unknown]
  - Increased appetite [Unknown]
  - Loss of consciousness [Recovering/Resolving]

NARRATIVE: CASE EVENT DATE: 202008
